FAERS Safety Report 18418875 (Version 2)
Quarter: 2020Q4

REPORT INFORMATION
  Report Type: Spontaneous
  Country: CA (occurrence: CA)
  Receive Date: 20201023
  Receipt Date: 20201027
  Transmission Date: 20210114
  Serious: Yes (Other)
  Sender: FDA-Public Use
  Company Number: CA-TEVA-2020-CA-1841055

PATIENT
  Age: 67 Year
  Sex: Female

DRUGS (1)
  1. TEVA RISEDRONATE [Suspect]
     Active Substance: RISEDRONATE SODIUM
     Dates: start: 20201014

REACTIONS (2)
  - Haematochezia [Unknown]
  - Dyspepsia [Unknown]

NARRATIVE: CASE EVENT DATE: 20201014
